FAERS Safety Report 4430594-1 (Version None)
Quarter: 2004Q3

REPORT INFORMATION
  Report Type: 
  Country: None (occurrence: None)
  Receive Date: 20040819
  Receipt Date: 20040819
  Transmission Date: 20050211
  Serious: No
  Sender: FDA-Public Use
  Company Number: None

PATIENT
  Age: 30 Year
  Sex: Male

DRUGS (1)
  1. IMITREX [Suspect]
     Indication: MIGRAINE
     Dosage: 100 MG ORAL
     Route: 048
     Dates: start: 20040730

REACTIONS (3)
  - DYSPNOEA [None]
  - OROPHARYNGEAL SWELLING [None]
  - THROAT TIGHTNESS [None]
